FAERS Safety Report 7693711-6 (Version None)
Quarter: 2011Q3

REPORT INFORMATION
  Report Type: 
  Country: None (occurrence: None)
  Receive Date: 20110819
  Receipt Date: 20110810
  Transmission Date: 20111222
  Serious: Yes (Other)
  Sender: FDA-Public Use
  Company Number: FR-JNJFOC-20110805672

PATIENT
  Age: 56 Year
  Sex: Male
  Weight: 67 kg

DRUGS (16)
  1. NOVORAPID [Concomitant]
  2. REMICADE [Suspect]
     Route: 065
     Dates: start: 20110706
  3. ALFUZOSIN HCL [Concomitant]
  4. SOLU-MEDROL [Concomitant]
     Indication: PREMEDICATION
     Dates: start: 20110622
  5. AMLODIPINE BESYLATE [Concomitant]
  6. BISOPROLOL FUMARATE [Concomitant]
  7. PROZAC [Concomitant]
  8. CETIRIZINE HCL [Concomitant]
     Dates: start: 20110622
  9. REMICADE [Suspect]
     Dosage: HAD 23 INFUSIONS
     Route: 065
     Dates: start: 20060101, end: 20090501
  10. RABEPRAZOLE SODIUM [Concomitant]
  11. REMICADE [Suspect]
     Indication: ANKYLOSING SPONDYLITIS
     Dosage: DOSE ALSO REPORTED AS 5MG/KG
     Route: 065
     Dates: start: 20110622
  12. SOLU-MEDROL [Concomitant]
     Dates: start: 20110706
  13. CETIRIZINE HCL [Concomitant]
     Indication: PREMEDICATION
     Dates: start: 20110706
  14. LANTUS [Concomitant]
  15. IRBESARTAN [Concomitant]
  16. DIAMICRON [Concomitant]

REACTIONS (3)
  - ERYTHEMA [None]
  - INFUSION RELATED REACTION [None]
  - PANCREATOLITHIASIS [None]
